FAERS Safety Report 5491487-4 (Version None)
Quarter: 2007Q4

REPORT INFORMATION
  Report Type: 
  Country: None (occurrence: None)
  Receive Date: 20071022
  Receipt Date: 20071011
  Transmission Date: 20080405
  Serious: Yes (Hospitalization, Other)
  Sender: FDA-Public Use
  Company Number: PHBS2007NO16872

PATIENT
  Age: 32 Year
  Sex: Female
  Weight: 75 kg

DRUGS (2)
  1. TEGRETOL RETARD [Suspect]
     Indication: EPILEPSY
     Dosage: 200 + 400 MG/DAY
     Route: 048
  2. ORTHO EVRA [Suspect]
     Indication: CONTRACEPTION
     Route: 062

REACTIONS (3)
  - ABORTION INDUCED [None]
  - DRUG INTERACTION [None]
  - UNINTENDED PREGNANCY [None]
